FAERS Safety Report 12970207 (Version 3)
Quarter: 2023Q4

REPORT INFORMATION
  Report Type: Spontaneous
  Country: US (occurrence: US)
  Receive Date: 20161123
  Receipt Date: 20231020
  Transmission Date: 20240110
  Serious: No
  Sender: FDA-Public Use
  Company Number: US-PFIZER INC-2016542779

PATIENT
  Age: 78 Year
  Sex: Female

DRUGS (1)
  1. MISOPROSTOL [Suspect]
     Active Substance: MISOPROSTOL
     Dosage: UNK

REACTIONS (1)
  - Drug hypersensitivity [Unknown]
